FAERS Safety Report 5070076-X (Version None)
Quarter: 2006Q3

REPORT INFORMATION
  Report Type: 
  Country: None (occurrence: None)
  Receive Date: 20060803
  Receipt Date: 20060724
  Transmission Date: 20061208
  Serious: Yes (Hospitalization)
  Sender: FDA-Public Use
  Company Number: BR-BRISTOL-MYERS SQUIBB COMPANY-13451539

PATIENT
  Age: 65 Year
  Sex: Male

DRUGS (3)
  1. RUBRANOVA INJ [Suspect]
     Indication: MUSCULAR WEAKNESS
     Route: 030
  2. CITALOPRAM HYDROBROMIDE [Concomitant]
     Indication: DEPRESSION
  3. DIAZEPAM [Concomitant]

REACTIONS (3)
  - ERYTHEMA [None]
  - HYPERSENSITIVITY [None]
  - SWELLING FACE [None]
